FAERS Safety Report 11681482 (Version 1)
Quarter: 2015Q4

REPORT INFORMATION
  Report Type: Report from Study
  Country: VE (occurrence: VE)
  Receive Date: 20151029
  Receipt Date: 20151029
  Transmission Date: 20160304
  Serious: Yes (Hospitalization)
  Sender: FDA-Public Use
  Company Number: VE-ROCHE-1652357

PATIENT
  Sex: Female
  Weight: 85 kg

DRUGS (1)
  1. AVASTIN [Suspect]
     Active Substance: BEVACIZUMAB
     Indication: LUNG NEOPLASM MALIGNANT
     Route: 042
     Dates: end: 201505

REACTIONS (4)
  - Urogenital fistula [Unknown]
  - Metastases to central nervous system [Not Recovered/Not Resolved]
  - Dyspnoea [Not Recovered/Not Resolved]
  - Superior vena cava syndrome [Not Recovered/Not Resolved]
